FAERS Safety Report 11611672 (Version 2)
Quarter: 2015Q4

REPORT INFORMATION
  Report Type: Spontaneous
  Country: US (occurrence: US)
  Receive Date: 20151008
  Receipt Date: 20151028
  Transmission Date: 20160304
  Serious: Yes (Death, Hospitalization, Other)
  Sender: FDA-Public Use
  Company Number: US-009507513-1510USA003493

PATIENT
  Age: 52 Year
  Sex: Male

DRUGS (1)
  1. KEYTRUDA [Suspect]
     Active Substance: PEMBROLIZUMAB
     Indication: OESOPHAGEAL CARCINOMA
     Dosage: UNK, ONCE
     Route: 042
     Dates: start: 20150922

REACTIONS (4)
  - Metastases to bone [Fatal]
  - Dyspnoea [Fatal]
  - Product use issue [Unknown]
  - Oesophageal carcinoma [Fatal]

NARRATIVE: CASE EVENT DATE: 2015
